FAERS Safety Report 24035793 (Version 1)
Quarter: 2024Q3

REPORT INFORMATION
  Report Type: Other
  Country: ZA (occurrence: ZA)
  Receive Date: 20240701
  Receipt Date: 20240701
  Transmission Date: 20241017
  Serious: Yes (Hospitalization, Other)
  Sender: COREPHARMA
  Company Number: ZA-CorePharma LLC-2158735

PATIENT
  Age: 3 Decade
  Sex: Male

DRUGS (2)
  1. AMLODIPINE BESYLATE [Suspect]
     Active Substance: AMLODIPINE BESYLATE
     Indication: Product used for unknown indication
     Route: 065
  2. RISPERIDONE [Suspect]
     Active Substance: RISPERIDONE
     Route: 065

REACTIONS (4)
  - Shock [Recovered/Resolved]
  - Overdose [Unknown]
  - Blood lactic acid increased [Recovered/Resolved]
  - Haemodynamic instability [Recovered/Resolved]
